FAERS Safety Report 18590479 (Version 3)
Quarter: 2021Q1

REPORT INFORMATION
  Report Type: Report from Study
  Country: US (occurrence: US)
  Receive Date: 20201208
  Receipt Date: 20210303
  Transmission Date: 20210419
  Serious: No
  Sender: FDA-Public Use
  Company Number: NVSC2020US325711

PATIENT
  Sex: Female

DRUGS (4)
  1. PROMACTA [Suspect]
     Active Substance: ELTROMBOPAG OLAMINE
     Dosage: 25 MG, UNKNOWN
     Route: 048
  2. PROMACTA [Suspect]
     Active Substance: ELTROMBOPAG OLAMINE
     Indication: PRODUCT USED FOR UNKNOWN INDICATION
     Dosage: UNK
     Route: 065
  3. PROMACTA [Suspect]
     Active Substance: ELTROMBOPAG OLAMINE
     Route: 048
  4. PROMACTA [Suspect]
     Active Substance: ELTROMBOPAG OLAMINE
     Dosage: UNK UNK, QOD
     Route: 065

REACTIONS (8)
  - Rash pruritic [Unknown]
  - Platelet count decreased [Unknown]
  - Osteoarthritis [Unknown]
  - Insomnia [Unknown]
  - Depression [Unknown]
  - Pruritus [Unknown]
  - Platelet count increased [Unknown]
  - Wrong technique in product usage process [Unknown]
